FAERS Safety Report 5019897-X (Version None)
Quarter: 2006Q2

REPORT INFORMATION
  Report Type: 
  Country: None (occurrence: None)
  Receive Date: 20060605
  Receipt Date: 20060605
  Transmission Date: 20061013
  Serious: Yes (Hospitalization)
  Sender: FDA-Public Use
  Company Number: None

PATIENT
  Age: 34 Year
  Sex: Female
  Weight: 92 kg

DRUGS (4)
  1. VANCOMYCIN [Suspect]
     Indication: SUBCUTANEOUS ABSCESS
     Dosage: 1GM Q12HR IV BOLUS
     Route: 040
     Dates: start: 20060518, end: 20060531
  2. VANCOMYCIN [Concomitant]
  3. FORTAZ [Concomitant]
  4. AMIKACIN [Concomitant]

REACTIONS (1)
  - ERYTHEMA MULTIFORME [None]
